FAERS Safety Report 21046051 (Version 2)
Quarter: 2022Q3

REPORT INFORMATION
  Report Type: Report from Study
  Country: AT (occurrence: AT)
  Receive Date: 20220706
  Receipt Date: 20220715
  Transmission Date: 20221027
  Serious: Yes (Hospitalization)
  Sender: FDA-Public Use
  Company Number: AT-TAKEDA-2022TUS044196

PATIENT
  Sex: Female

DRUGS (2)
  1. VELAGLUCERASE ALFA [Suspect]
     Active Substance: VELAGLUCERASE ALFA
     Indication: Gaucher^s disease
     Dosage: 4800 INTERNATIONAL UNIT, Q2WEEKS
     Route: 042
     Dates: start: 20220628
  2. VELAGLUCERASE ALFA [Suspect]
     Active Substance: VELAGLUCERASE ALFA
     Dosage: 4800 INTERNATIONAL UNIT, Q2WEEKS
     Route: 042
     Dates: start: 20220628

REACTIONS (1)
  - Bone disorder [Not Recovered/Not Resolved]
